FAERS Safety Report 16275552 (Version 1)
Quarter: 2019Q2

REPORT INFORMATION
  Report Type: Spontaneous
  Country: US (occurrence: US)
  Receive Date: 20190503
  Receipt Date: 20190503
  Transmission Date: 20190711
  Serious: Yes (Hospitalization)
  Sender: FDA-Public Use
  Company Number: None

PATIENT
  Sex: Male
  Weight: 103.5 kg

DRUGS (9)
  1. VITAMIN B12 [Concomitant]
     Active Substance: CYANOCOBALAMIN
  2. TACROLIMUS. [Concomitant]
     Active Substance: TACROLIMUS
  3. VITAMIN D NOS [Concomitant]
     Active Substance: VITAMIN D NOS
  4. ABIRATERONE. [Suspect]
     Active Substance: ABIRATERONE ACETATE
     Indication: PROSTATE CANCER
     Route: 048
     Dates: start: 20180926, end: 20190314
  5. LORATADINE. [Concomitant]
     Active Substance: LORATADINE
  6. MYCOPHENOLATE [Concomitant]
     Active Substance: MYCOPHENOLIC ACID
  7. TAMSULOSIN [Concomitant]
     Active Substance: TAMSULOSIN
  8. COUMADIN [Concomitant]
     Active Substance: WARFARIN SODIUM
  9. IRON [Concomitant]
     Active Substance: IRON

REACTIONS (3)
  - Therapy cessation [None]
  - Escherichia bacteraemia [None]
  - Haematoma [None]

NARRATIVE: CASE EVENT DATE: 20190314
